FAERS Safety Report 18065705 (Version 1)
Quarter: 2020Q3

REPORT INFORMATION
  Report Type: Spontaneous
  Country: US (occurrence: US)
  Receive Date: 20200724
  Receipt Date: 20200724
  Transmission Date: 20201103
  Serious: Yes (Hospitalization)
  Sender: FDA-Public Use
  Company Number: None

PATIENT
  Sex: Female

DRUGS (1)
  1. AUSTEDO [Suspect]
     Active Substance: DEUTETRABENAZINE
     Route: 048

REACTIONS (6)
  - Swelling [None]
  - Hypophagia [None]
  - Pancreatitis chronic [None]
  - Pain [None]
  - Deep vein thrombosis [None]
  - Muscle spasms [None]
